FAERS Safety Report 10078907 (Version 3)
Quarter: 2014Q2

REPORT INFORMATION
  Report Type: Spontaneous
  Country: US (occurrence: US)
  Receive Date: 20140415
  Receipt Date: 20140513
  Transmission Date: 20141212
  Serious: Yes (Other)
  Sender: FDA-Public Use
  Company Number: US-CELGENEUS-163-21880-13112545

PATIENT
  Age: 59 Year
  Sex: Female
  Weight: 123.1 kg

DRUGS (27)
  1. REVLIMID [Suspect]
     Indication: PLASMA CELL MYELOMA
     Dosage: 25 MILLIGRAM
     Route: 048
     Dates: start: 20131028, end: 20131208
  2. DEXAMETHASONE [Suspect]
     Indication: PLASMA CELL MYELOMA
     Route: 048
     Dates: start: 20131028, end: 20131028
  3. DEXAMETHASONE [Suspect]
     Indication: PROPHYLAXIS
     Route: 048
     Dates: start: 20131104, end: 20131111
  4. DEXAMETHASONE [Suspect]
     Route: 048
     Dates: start: 20131118, end: 20131218
  5. DEXAMETHASONE [Suspect]
     Route: 065
     Dates: start: 20131211, end: 20131211
  6. SAR650984 [Suspect]
     Indication: PLASMA CELL MYELOMA
     Route: 065
     Dates: start: 20131028, end: 20131028
  7. SAR650984 [Suspect]
     Route: 065
     Dates: start: 20131111, end: 20131111
  8. GRANISETRON [Concomitant]
     Indication: PROPHYLAXIS
     Route: 065
     Dates: start: 20131211
  9. LORAZEPAM [Concomitant]
     Indication: PROPHYLAXIS
     Route: 065
     Dates: start: 20131211, end: 20131211
  10. ATROVENT [Concomitant]
     Indication: PRODUCT USED FOR UNKNOWN INDICATION
     Route: 065
     Dates: start: 20130703
  11. SOLUMEDROL [Concomitant]
     Indication: PROPHYLAXIS
     Route: 065
     Dates: start: 20131028, end: 20131109
  12. SOLUMEDROL [Concomitant]
     Route: 065
     Dates: start: 20131109, end: 20131109
  13. SOLUMEDROL [Concomitant]
     Route: 065
     Dates: start: 20131111, end: 20131111
  14. SOLUMEDROL [Concomitant]
     Route: 065
     Dates: start: 20131125, end: 20131125
  15. SOLUMEDROL [Concomitant]
     Route: 065
     Dates: start: 20131211, end: 20131211
  16. ACYCLOVIR [Concomitant]
     Indication: PROPHYLAXIS
     Route: 065
  17. METOPROLOL [Concomitant]
     Indication: PRODUCT USED FOR UNKNOWN INDICATION
     Route: 065
  18. FUROSEMIDE [Concomitant]
     Indication: PRODUCT USED FOR UNKNOWN INDICATION
     Route: 065
  19. LEVOTHYROXINE [Concomitant]
     Indication: PRODUCT USED FOR UNKNOWN INDICATION
     Route: 065
  20. ZOFRAN [Concomitant]
     Indication: PROPHYLAXIS
     Route: 065
  21. METFORMIN ER [Concomitant]
     Indication: PRODUCT USED FOR UNKNOWN INDICATION
     Route: 065
     Dates: start: 201308
  22. FELODIPINE ER [Concomitant]
     Indication: PRODUCT USED FOR UNKNOWN INDICATION
     Route: 065
  23. ACETAMINOPHEN [Concomitant]
     Indication: PROPHYLAXIS
     Route: 065
     Dates: start: 20131028, end: 20131028
  24. ACETAMINOPHEN [Concomitant]
     Route: 065
     Dates: start: 20131111, end: 20131111
  25. ACETAMINOPHEN [Concomitant]
     Route: 065
     Dates: start: 20131125, end: 20131125
  26. ACETAMINOPHEN [Concomitant]
     Route: 065
     Dates: start: 20131211, end: 20131211
  27. HYDROCORTISONE [Concomitant]
     Indication: PRODUCT USED FOR UNKNOWN INDICATION
     Route: 065
     Dates: start: 20131125, end: 20131211

REACTIONS (7)
  - Hyperglycaemia [Recovered/Resolved]
  - Vomiting [Recovered/Resolved]
  - Diarrhoea [Recovered/Resolved]
  - Pruritus [Recovered/Resolved]
  - Pruritus generalised [Recovered/Resolved]
  - Infusion related reaction [Recovered/Resolved]
  - Non-cardiac chest pain [Unknown]
